FAERS Safety Report 4513376-1 (Version None)
Quarter: 2004Q4

REPORT INFORMATION
  Report Type: 
  Country: None (occurrence: None)
  Receive Date: 20041130
  Receipt Date: 20040831
  Transmission Date: 20050328
  Serious: No
  Sender: FDA-Public Use
  Company Number: US-BRISTOL-MYERS SQUIBB COMPANY-12687968

PATIENT
  Age: 65 Year
  Sex: Male
  Weight: 88 kg

DRUGS (13)
  1. ERBITUX [Suspect]
     Indication: COLORECTAL CANCER METASTATIC
     Dosage: 1ST DOSE
     Route: 042
     Dates: start: 20040831, end: 20040831
  2. ZOFRAN [Concomitant]
     Indication: PREMEDICATION
  3. BENADRYL [Concomitant]
     Indication: PREMEDICATION
  4. ZANTAC [Concomitant]
     Indication: PREMEDICATION
  5. SOLU-MEDROL [Concomitant]
     Indication: PREMEDICATION
  6. GLUCOPHAGE [Concomitant]
  7. LISINOPRIL [Concomitant]
  8. ZOCOR [Concomitant]
  9. PLAVIX [Concomitant]
  10. METOPROLOL [Concomitant]
  11. CALCIUM [Concomitant]
  12. VITAMIN B6 [Concomitant]
  13. ECOTRIN [Concomitant]

REACTIONS (2)
  - PRURITUS [None]
  - WHEEZING [None]
